FAERS Safety Report 4389316-5 (Version None)
Quarter: 2004Q3

REPORT INFORMATION
  Report Type: 
  Country: None (occurrence: None)
  Receive Date: 20040702
  Receipt Date: 20040623
  Transmission Date: 20050211
  Serious: Yes (Hospitalization, Disabling)
  Sender: FDA-Public Use
  Company Number: FR-ROCHE-371885

PATIENT
  Age: 40 Year
  Sex: Female

DRUGS (6)
  1. CELLCEPT [Suspect]
     Route: 048
     Dates: start: 20030810
  2. CORTANCYL [Suspect]
     Route: 048
     Dates: start: 20030810
  3. IMUREL [Suspect]
     Route: 048
     Dates: start: 20030810
  4. HUMALOG MIX 50/50 [Suspect]
     Indication: DIABETES MELLITUS
     Route: 058
     Dates: start: 19810101
  5. VFEND [Suspect]
     Indication: ASPERGILLOSIS
     Route: 048
     Dates: start: 20031212
  6. PROGRAF [Suspect]
     Route: 048
     Dates: start: 20030810

REACTIONS (2)
  - CHOLECYSTITIS [None]
  - CHOLELITHIASIS [None]
